FAERS Safety Report 8893099 (Version 1)
Quarter: 2012Q4

REPORT INFORMATION
  Report Type: Spontaneous
  Country: US (occurrence: None)
  Receive Date: 20121031
  Receipt Date: 20121031
  Transmission Date: 20130627
  Serious: Yes (Death, Other)
  Sender: FDA-Public Use
  Company Number: 2012MA012490

PATIENT
  Age: 54 Year
  Sex: Female

DRUGS (5)
  1. LEVETIRACETAM [Suspect]
     Indication: CONVULSION PROPHYLAXIS
  2. MEPROBAMATE [Concomitant]
  3. METHADONE [Concomitant]
  4. MIRTAZAPINE [Concomitant]
  5. NORTRIPTYLINE [Concomitant]

REACTIONS (2)
  - Toxicity to various agents [None]
  - Unresponsive to stimuli [None]
